FAERS Safety Report 8771950 (Version 1)
Quarter: 2012Q4

REPORT INFORMATION
  Report Type: 
  Country: CA (occurrence: CA)
  Receive Date: 20120906
  Receipt Date: 20120906
  Transmission Date: 20130627
  Serious: Yes (Life-Threatening)
  Sender: FDA-Public Use
  Company Number: CA-ROCHE-1116949

PATIENT
  Age: 81 Year
  Sex: Female
  Weight: 59.93 kg

DRUGS (11)
  1. AVASTIN [Suspect]
     Indication: PRODUCT USED FOR UNKNOWN INDICATION
     Route: 031
  2. ADALAT XL [Concomitant]
     Route: 065
  3. GLUCOSAMINE SULFATE [Concomitant]
     Route: 065
  4. ALENDRONATE [Concomitant]
     Route: 065
  5. CENTRUM [Concomitant]
     Route: 065
  6. CLONAZEPAM [Concomitant]
     Route: 065
  7. CRESTOR [Concomitant]
     Route: 065
  8. METAMUCIL [Concomitant]
     Route: 065
  9. OMEGA-3 [Concomitant]
     Route: 065
  10. SYNTHROID [Concomitant]
     Route: 065
  11. VITAMIN D [Concomitant]
     Route: 065

REACTIONS (1)
  - Basosquamous carcinoma of skin [Not Recovered/Not Resolved]
